FAERS Safety Report 7239531-8 (Version None)
Quarter: 2011Q1

REPORT INFORMATION
  Report Type: 
  Country: None (occurrence: None)
  Receive Date: 20110121
  Receipt Date: 20110113
  Transmission Date: 20110831
  Serious: Yes (Hospitalization)
  Sender: FDA-Public Use
  Company Number: US-MERCK-1012USA01871

PATIENT
  Age: 79 Year
  Sex: Female

DRUGS (6)
  1. VENTOLIN [Concomitant]
     Route: 065
  2. LEVOXYL [Concomitant]
     Route: 065
  3. LISINOPRIL [Concomitant]
     Route: 065
  4. SPIRIVA [Concomitant]
     Route: 065
  5. FOSAMAX [Suspect]
     Indication: OSTEOPOROSIS
     Route: 048
     Dates: start: 20061101, end: 20101201
  6. OMEPRAZOLE [Concomitant]
     Route: 065

REACTIONS (3)
  - BLOOD 1,25-DIHYDROXYCHOLECALCIFEROL DECREASED [None]
  - PATHOLOGICAL FRACTURE [None]
  - PAIN IN EXTREMITY [None]
